FAERS Safety Report 5409355-2 (Version None)
Quarter: 2007Q3

REPORT INFORMATION
  Report Type: 
  Country: None (occurrence: None)
  Receive Date: 20070807
  Receipt Date: 20070727
  Transmission Date: 20080115
  Serious: Yes (Hospitalization)
  Sender: FDA-Public Use
  Company Number: OMPQ-NO-0708S-1096

PATIENT
  Age: 78 Year
  Sex: Female

DRUGS (2)
  1. OMNIPAQUE 140 [Suspect]
     Indication: BACK PAIN
     Dosage: SINGLE DOSE, I.T.
     Route: 038
     Dates: start: 20070626, end: 20070626
  2. PREDNISOLONE [Concomitant]

REACTIONS (1)
  - PARAPLEGIA [None]
